FAERS Safety Report 5746101-7 (Version None)
Quarter: 2008Q2

REPORT INFORMATION
  Report Type: 
  Country: None (occurrence: None)
  Receive Date: 20080522
  Receipt Date: 20071129
  Transmission Date: 20081010
  Serious: No
  Sender: FDA-Public Use
  Company Number: A0684361A

PATIENT
  Age: 64 Year
  Sex: Female

DRUGS (2)
  1. BACTROBAN [Suspect]
     Indication: ERYTHEMA
     Dosage: .5G TWICE PER DAY
     Route: 045
     Dates: start: 20070922
  2. LEVAQUIN [Concomitant]

REACTIONS (4)
  - COUGH [None]
  - FEELING ABNORMAL [None]
  - RASH [None]
  - RESPIRATORY TRACT CONGESTION [None]
